FAERS Safety Report 5940301-9 (Version None)
Quarter: 2008Q4

REPORT INFORMATION
  Report Type: 
  Country: None (occurrence: None)
  Receive Date: 20081104
  Receipt Date: 20081030
  Transmission Date: 20090506
  Serious: Yes (Death, Hospitalization)
  Sender: FDA-Public Use
  Company Number: A0754265A

PATIENT
  Sex: Male

DRUGS (1)
  1. ARIXTRA [Suspect]
     Route: 058
     Dates: start: 20080101

REACTIONS (3)
  - DEEP VEIN THROMBOSIS [None]
  - PULMONARY EMBOLISM [None]
  - THROMBOCYTOPENIA [None]
